FAERS Safety Report 5140783-9 (Version None)
Quarter: 2006Q4

REPORT INFORMATION
  Report Type: 
  Country: None (occurrence: None)
  Receive Date: 20061024
  Receipt Date: 20061010
  Transmission Date: 20070319
  Serious: Yes (Death, Other)
  Sender: FDA-Public Use
  Company Number: DE200610002024

PATIENT
  Age: 68 Year
  Sex: Male

DRUGS (2)
  1. ALIMTA [Suspect]
     Indication: NON-SMALL CELL LUNG CANCER
     Dosage: 1000 MG, INTRAVENOUS
     Route: 042
     Dates: start: 20060626, end: 20060717
  2. VITAMINS NOS (VITAMINS NOS) [Concomitant]

REACTIONS (2)
  - FATIGUE [None]
  - LEUKOPENIA [None]
